FAERS Safety Report 8622577-2 (Version None)
Quarter: 2012Q3

REPORT INFORMATION
  Report Type: 
  Country: None (occurrence: None)
  Receive Date: 20120809
  Receipt Date: 20120726
  Transmission Date: 20120928
  Serious: Yes (Other)
  Sender: FDA-Public Use
  Company Number: 2012P1049506

PATIENT
  Age: 47 Year
  Sex: Female

DRUGS (7)
  1. FENTANYL-100 [Suspect]
     Indication: SYSTEMIC LUPUS ERYTHEMATOSUS
     Dosage: 1 PATCH;Q3D;TDER ; 1 PATCH;Q3D;TDER
     Route: 062
     Dates: start: 20120501, end: 20120701
  2. FENTANYL-100 [Suspect]
     Indication: BACK PAIN
     Dosage: 1 PATCH;Q3D;TDER ; 1 PATCH;Q3D;TDER
     Route: 062
     Dates: start: 20120501, end: 20120701
  3. FENTANYL-100 [Suspect]
     Indication: SYSTEMIC LUPUS ERYTHEMATOSUS
     Dosage: 1 PATCH;Q3D;TDER ; 1 PATCH;Q3D;TDER
     Route: 062
     Dates: start: 20120713
  4. FENTANYL-100 [Suspect]
     Indication: BACK PAIN
     Dosage: 1 PATCH;Q3D;TDER ; 1 PATCH;Q3D;TDER
     Route: 062
     Dates: start: 20120713
  5. FENTANYL [Suspect]
     Indication: PAIN
     Dates: start: 20120701, end: 20120713
  6. KEPPRA [Concomitant]
  7. UNSPECIFIED BREAKTHROUGH PAIN MEDICATION (NO PREF. NAME) [Suspect]

REACTIONS (9)
  - NAUSEA [None]
  - CONVULSION [None]
  - INCORRECT DRUG ADMINISTRATION DURATION [None]
  - WRONG TECHNIQUE IN DRUG USAGE PROCESS [None]
  - PRODUCT ADHESION ISSUE [None]
  - URINARY INCONTINENCE [None]
  - DEVICE LEAKAGE [None]
  - BREAKTHROUGH PAIN [None]
  - APPLICATION SITE COLD FEELING [None]
